FAERS Safety Report 4525723-5 (Version None)
Quarter: 2004Q4

REPORT INFORMATION
  Report Type: 
  Country: None (occurrence: None)
  Receive Date: 20041116
  Receipt Date: 20041013
  Transmission Date: 20050328
  Serious: No
  Sender: FDA-Public Use
  Company Number: S04-USA-06760-01

PATIENT
  Age: 84 Year
  Sex: Female

DRUGS (8)
  1. NAMENDA [Suspect]
     Indication: DEMENTIA ALZHEIMER'S TYPE
     Dosage: 5 MG BID PO
     Route: 048
     Dates: start: 20041010, end: 20041012
  2. NAMENDA [Suspect]
     Indication: DEMENTIA ALZHEIMER'S TYPE
     Dosage: 5 MG QD PO
     Route: 048
     Dates: start: 20041003, end: 20041009
  3. EXELON [Concomitant]
  4. ZOCOR [Concomitant]
  5. CARDIZEM [Concomitant]
  6. LASIX [Concomitant]
  7. NEURONTIN [Concomitant]
  8. AMBIEN [Concomitant]

REACTIONS (2)
  - DISORIENTATION [None]
  - PSYCHOMOTOR HYPERACTIVITY [None]
